FAERS Safety Report 23088566 (Version 1)
Quarter: 2023Q4

REPORT INFORMATION
  Report Type: Spontaneous
  Country: GB (occurrence: GB)
  Receive Date: 20231020
  Receipt Date: 20231020
  Transmission Date: 20240110
  Serious: Yes (Other)
  Sender: FDA-Public Use
  Company Number: None

PATIENT
  Age: 39 Year
  Sex: Female

DRUGS (1)
  1. MIRTAZAPINE [Suspect]
     Active Substance: MIRTAZAPINE
     Indication: Depression
     Dosage: 15MG; ;
     Dates: start: 20230929, end: 20231008

REACTIONS (4)
  - Hyperhidrosis [Unknown]
  - Abnormal dreams [Unknown]
  - Anger [Unknown]
  - Heart rate [Unknown]

NARRATIVE: CASE EVENT DATE: 20231001
